FAERS Safety Report 6911832-X (Version None)
Quarter: 2010Q3

REPORT INFORMATION
  Report Type: 
  Country: None (occurrence: None)
  Receive Date: 20100806
  Receipt Date: 20070716
  Transmission Date: 20110219
  Serious: No
  Sender: FDA-Public Use
  Company Number: US-PFIZER INC-2007058387

PATIENT
  Sex: Male

DRUGS (1)
  1. DETROL [Suspect]

REACTIONS (4)
  - ABDOMINAL PAIN UPPER [None]
  - DISCOMFORT [None]
  - DYSURIA [None]
  - FLATULENCE [None]
